FAERS Safety Report 9206084 (Version 1)
Quarter: 2013Q1

REPORT INFORMATION
  Report Type: Spontaneous
  Country: US (occurrence: None)
  Receive Date: 20120709
  Receipt Date: 20120709
  Transmission Date: 20140127
  Serious: Yes (Other)
  Sender: FDA-Public Use
  Company Number: PHHY2010US51900

PATIENT
  Age: 69 Year
  Sex: Male
  Weight: 81.6 kg

DRUGS (5)
  1. GLEEVEC [Suspect]
     Indication: CHRONIC MYELOID LEUKAEMIA
     Route: 048
     Dates: start: 200612
  2. VITAMIN D (ERGOCALCIFEROL) [Concomitant]
  3. ALLOPURINOL [Concomitant]
  4. ATENOLOL (ATENOLOL) [Concomitant]
  5. ZESTRIL (LISINOPRIL) [Concomitant]

REACTIONS (14)
  - Renal failure [None]
  - Anaemia [None]
  - Diarrhoea [None]
  - Bone pain [None]
  - Arthralgia [None]
  - Paraesthesia [None]
  - Muscle spasms [None]
  - Swelling [None]
  - Blood cholesterol decreased [None]
  - Abdominal pain upper [None]
  - Dyspepsia [None]
  - Haemoglobin decreased [None]
  - Red blood cell count decreased [None]
  - Fatigue [None]
